FAERS Safety Report 17951678 (Version 2)
Quarter: 2020Q4

REPORT INFORMATION
  Report Type: Report from Study
  Country: US (occurrence: US)
  Receive Date: 20200626
  Receipt Date: 20201002
  Transmission Date: 20210113
  Serious: Yes (Other)
  Sender: FDA-Public Use
  Company Number: US-BAYER-2020-092333

PATIENT
  Age: 68 Year
  Sex: Male
  Weight: 54 kg

DRUGS (17)
  1. XOFIGO [Suspect]
     Active Substance: RADIUM RA-223 DICHLORIDE
     Indication: METASTASES TO BONE
     Dosage: 83 ?CI, Q4WK
     Route: 042
     Dates: start: 20200318, end: 20200318
  2. XOFIGO [Suspect]
     Active Substance: RADIUM RA-223 DICHLORIDE
     Indication: HORMONE-REFRACTORY PROSTATE CANCER
     Dosage: 83 ?CI, Q4WK
     Route: 042
     Dates: start: 20200429, end: 20200429
  3. XOFIGO [Suspect]
     Active Substance: RADIUM RA-223 DICHLORIDE
     Indication: HORMONE-REFRACTORY PROSTATE CANCER
     Dosage: UNK
     Dates: start: 20200817, end: 20200817
  4. CIPRO [Concomitant]
     Active Substance: CIPROFLOXACIN HYDROCHLORIDE
     Dosage: 500 MG, BID
     Route: 048
     Dates: start: 20200611
  5. ACETAMINOPHEN;HYDROCODONE [Concomitant]
     Active Substance: ACETAMINOPHEN\HYDROCODONE
     Indication: PAIN
     Dosage: 120 MG EVERY 6 HOURS PRN
     Route: 048
     Dates: start: 20200404
  6. NAPROSYN [Concomitant]
     Active Substance: NAPROXEN
     Dosage: 250 MG, BID WITH MEALS
     Route: 048
     Dates: start: 20200116
  7. ERGOCALCIFEROL. [Concomitant]
     Active Substance: ERGOCALCIFEROL
     Dosage: DAILY
     Route: 048
  8. ZINC. [Concomitant]
     Active Substance: ZINC
     Dosage: 100 MG DAILY
     Route: 048
  9. XOFIGO [Suspect]
     Active Substance: RADIUM RA-223 DICHLORIDE
     Indication: HORMONE-REFRACTORY PROSTATE CANCER
     Dosage: 82.10 ?CI, Q4WK
     Route: 042
     Dates: start: 20200218, end: 20200218
  10. PERCOCET [Concomitant]
     Active Substance: ACETAMINOPHEN\OXYCODONE HYDROCHLORIDE
     Indication: PAIN
     Dosage: 1 DF, BID/ PRN
     Route: 048
     Dates: start: 20200616
  11. ZOFRAN [Concomitant]
     Active Substance: ONDANSETRON HYDROCHLORIDE
     Indication: VOMITING
  12. TURMERIC [CURCUMA LONGA] [Concomitant]
     Active Substance: HERBALS\TURMERIC
     Indication: PAIN
     Dosage: DAILY
     Route: 048
  13. XOFIGO [Suspect]
     Active Substance: RADIUM RA-223 DICHLORIDE
     Indication: HORMONE-REFRACTORY PROSTATE CANCER
     Dosage: 87 ?CI, Q4WK
     Route: 042
     Dates: start: 20200601, end: 20200601
  14. VITAMIN D [VITAMIN D NOS] [Concomitant]
     Active Substance: VITAMIN D NOS
     Dosage: UNK
     Route: 048
  15. OMNICEF [Concomitant]
     Active Substance: CEFDINIR
     Dosage: 300 MG, BID
     Route: 048
     Dates: start: 20200512
  16. ZOFRAN [Concomitant]
     Active Substance: ONDANSETRON HYDROCHLORIDE
     Indication: NAUSEA
     Dosage: 8 MG EVERY 8 HOURS.PRN
     Route: 048
     Dates: start: 20200127
  17. ULTRAM [Concomitant]
     Active Substance: TRAMADOL HYDROCHLORIDE
     Indication: PAIN
     Dosage: 1 TABLET EVERY 6 HOURS AS NEEDED FOR MODERATE PAIN
     Route: 048
     Dates: start: 20200309

REACTIONS (18)
  - Blood alkaline phosphatase increased [Not Recovered/Not Resolved]
  - Neutrophil count increased [None]
  - Lymphadenopathy [None]
  - Red blood cell count decreased [None]
  - Fatigue [None]
  - Back pain [None]
  - Anaemia [Unknown]
  - Haemoglobin decreased [None]
  - Prostatic specific antigen increased [Not Recovered/Not Resolved]
  - Fatigue [None]
  - Bone swelling [None]
  - Drug ineffective [None]
  - Lymphocyte count decreased [None]
  - Lip swelling [None]
  - Cancer pain [None]
  - Haematocrit decreased [None]
  - Nausea [None]
  - Urinary tract infection [None]

NARRATIVE: CASE EVENT DATE: 202004
